FAERS Safety Report 5563419-1 (Version None)
Quarter: 2007Q4

REPORT INFORMATION
  Report Type: 
  Country: None (occurrence: None)
  Receive Date: 20071217
  Receipt Date: 20070504
  Transmission Date: 20080405
  Serious: No
  Sender: FDA-Public Use
  Company Number: US-ASTRAZENECA-2007UW09727

PATIENT
  Age: 78 Year
  Sex: Female
  Weight: 30.9 kg

DRUGS (6)
  1. CRESTOR [Suspect]
     Indication: BLOOD CHOLESTEROL INCREASED
     Route: 048
     Dates: start: 20061101
  2. FOSINOPRIL SODIUM [Concomitant]
  3. ATENOLOL [Concomitant]
  4. PLAVIX [Concomitant]
  5. ASPIRIN [Concomitant]
  6. MULTI-VITAMIN [Concomitant]

REACTIONS (2)
  - NAIL DISORDER [None]
  - NAIL GROWTH ABNORMAL [None]
